FAERS Safety Report 10554299 (Version 1)
Quarter: 2014Q4

REPORT INFORMATION
  Report Type: Spontaneous
  Country: US (occurrence: None)
  Receive Date: 20141029
  Receipt Date: 20141029
  Transmission Date: 20150529
  Serious: No
  Sender: FDA-Public Use
  Company Number: None

PATIENT
  Sex: Male

DRUGS (5)
  1. ZYTIGA [Suspect]
     Active Substance: ABIRATERONE ACETATE
     Indication: PROSTATE CANCER
     Route: 048
     Dates: start: 20140711
  2. CASODEX [Concomitant]
     Active Substance: BICALUTAMIDE
  3. LUPRON DEPOT [Concomitant]
     Active Substance: LEUPROLIDE ACETATE
  4. PREDNISONE. [Concomitant]
     Active Substance: PREDNISONE
  5. HYDROCHLOROT [Concomitant]
     Active Substance: HYDROCHLOROTHIAZIDE

REACTIONS (1)
  - Blood urine present [None]
